FAERS Safety Report 7296149-9 (Version None)
Quarter: 2011Q1

REPORT INFORMATION
  Report Type: 
  Country: None (occurrence: None)
  Receive Date: 20110216
  Receipt Date: 20110209
  Transmission Date: 20110831
  Serious: Yes (Other)
  Sender: FDA-Public Use
  Company Number: DE-ROCHE-759945

PATIENT
  Sex: Female
  Weight: 100 kg

DRUGS (2)
  1. PEGINTERFERON ALFA-2A [Suspect]
     Route: 058
     Dates: start: 20091216
  2. RIBAVIRIN [Suspect]
     Route: 065

REACTIONS (1)
  - ASCITES [None]
